FAERS Safety Report 9556472 (Version 1)
Quarter: 2013Q3

REPORT INFORMATION
  Report Type: Spontaneous
  Country: US (occurrence: None)
  Receive Date: 20130906
  Receipt Date: 20130906
  Transmission Date: 20140515
  Serious: Yes (Other)
  Sender: FDA-Public Use
  Company Number: 163-POMAL-13061257

PATIENT
  Age: 58 Year
  Sex: Female
  Weight: 63.5 kg

DRUGS (10)
  1. POMALYST [Suspect]
     Indication: PLASMA CELL MYELOMA
     Route: 048
     Dates: start: 20130411
  2. DEXAMETHASONE [Concomitant]
  3. PRAVASTATIN SODIUM [Concomitant]
  4. BENAZEPRIL HCL (BENAZEPRIL HYDROCHLORIDE) [Concomitant]
  5. CALCIUM [Concomitant]
  6. MULTIVITAL [Concomitant]
  7. SOY (OTHER THERAPEUTIC PRODUCTS) [Concomitant]
  8. BABY ASPIRIN (ACETYLSALICYLIC ACID) [Concomitant]
  9. BLACK COHOSH (CIMICIFUGA RACEMOSA ROOT) [Concomitant]
  10. DONG QUAI (ANGELICA SINENSIS ROOT) [Concomitant]

REACTIONS (1)
  - Influenza like illness [None]
